FAERS Safety Report 4282108-7 (Version None)
Quarter: 2004Q1

REPORT INFORMATION
  Report Type: 
  Country: None (occurrence: None)
  Receive Date: 20040130
  Receipt Date: 20030627
  Transmission Date: 20041129
  Serious: No
  Sender: FDA-Public Use
  Company Number: US-BRISTOL-MYERS SQUIBB COMPANY-12320677

PATIENT
  Sex: Female

DRUGS (12)
  1. DESYREL [Suspect]
     Dosage: AT BEDTIME
  2. STADOL [Concomitant]
     Indication: HEADACHE
     Route: 045
  3. MODURETIC 5-50 [Concomitant]
  4. INDERAL [Concomitant]
  5. CAFERGOT [Concomitant]
  6. SOMA [Concomitant]
  7. BUSPAR [Concomitant]
  8. ELAVIL [Concomitant]
  9. INDOCIN [Concomitant]
  10. IMITREX [Concomitant]
  11. MEDROL [Concomitant]
  12. METHYLPREDNISOLONE [Concomitant]

REACTIONS (3)
  - HEADACHE [None]
  - NAUSEA [None]
  - TREMOR [None]
